FAERS Safety Report 5227533-2 (Version None)
Quarter: 2007Q1

REPORT INFORMATION
  Report Type: 
  Country: None (occurrence: None)
  Receive Date: 20070202
  Receipt Date: 20070125
  Transmission Date: 20070707
  Serious: Yes (Hospitalization, Other)
  Sender: FDA-Public Use
  Company Number: TR-SHR-TR-2007-002973

PATIENT
  Age: 30 Year
  Sex: Female

DRUGS (1)
  1. SOTALOL HYDROCHLORIDE [Suspect]
     Dosage: 80 MG, 1 DOSE
     Route: 048

REACTIONS (14)
  - ACCIDENTAL EXPOSURE [None]
  - BALANCE DISORDER [None]
  - CARDIAC MURMUR [None]
  - DIZZINESS [None]
  - ELECTROCARDIOGRAM QT PROLONGED [None]
  - FATIGUE [None]
  - HYPOTENSION [None]
  - MITRAL VALVE INCOMPETENCE [None]
  - PALPITATIONS [None]
  - PERICARDIAL EFFUSION [None]
  - PRESYNCOPE [None]
  - TORSADE DE POINTES [None]
  - VENTRICULAR TACHYCARDIA [None]
  - VISION BLURRED [None]
